FAERS Safety Report 15575838 (Version 2)
Quarter: 2018Q4

REPORT INFORMATION
  Report Type: Spontaneous
  Country: RO (occurrence: RO)
  Receive Date: 20181101
  Receipt Date: 20181115
  Transmission Date: 20190205
  Serious: Yes (Other)
  Sender: FDA-Public Use
  Company Number: RO-SA-2018SA298018

PATIENT
  Sex: Male

DRUGS (4)
  1. FLECAINIDA [Concomitant]
     Indication: ATRIAL FIBRILLATION
     Dosage: 100 MG
  2. METOPROLOL. [Concomitant]
     Active Substance: METOPROLOL
     Indication: ATRIAL FIBRILLATION
  3. ASPENTER [Concomitant]
     Active Substance: ASPIRIN
     Indication: ATRIAL FIBRILLATION
     Dosage: 75 MG
  4. FABRAZYME [Suspect]
     Active Substance: AGALSIDASE BETA
     Indication: FABRY^S DISEASE
     Dosage: 1 MMG/KG
     Route: 041
     Dates: start: 20180507

REACTIONS (5)
  - Hemiparesis [Recovered/Resolved]
  - Myoclonus [Recovered/Resolved]
  - Supraventricular tachycardia [Recovered/Resolved]
  - Demyelination [Unknown]
  - Quadriplegia [Recovered/Resolved]

NARRATIVE: CASE EVENT DATE: 201810
